FAERS Safety Report 8065046-3 (Version None)
Quarter: 2012Q1

REPORT INFORMATION
  Report Type: 
  Country: None (occurrence: None)
  Receive Date: 20120124
  Receipt Date: 20120120
  Transmission Date: 20120608
  Serious: No
  Sender: FDA-Public Use
  Company Number: US-PFIZER INC-2012017485

PATIENT
  Sex: Female
  Weight: 81.633 kg

DRUGS (5)
  1. LIPITOR [Concomitant]
     Indication: BLOOD CHOLESTEROL ABNORMAL
     Dosage: 20 MG, DAILY
     Route: 048
  2. CHANTIX [Suspect]
     Indication: SMOKING CESSATION THERAPY
     Dosage: 0.5 MG, UNK
     Route: 048
  3. CHANTIX [Suspect]
     Dosage: 1 MG, UNK
     Route: 048
  4. DOXAZOSIN [Concomitant]
     Indication: BLOOD PRESSURE ABNORMAL
     Dosage: 1 MG, 2X/DAY
  5. SYNTHROID [Concomitant]
     Indication: THYROID DISORDER
     Dosage: 0.075 MG, DAILY

REACTIONS (3)
  - SLEEP DISORDER [None]
  - ABNORMAL DREAMS [None]
  - VOMITING [None]
